FAERS Safety Report 11493483 (Version 1)
Quarter: 2015Q3

REPORT INFORMATION
  Report Type: Spontaneous
  Country: US (occurrence: US)
  Receive Date: 20150911
  Receipt Date: 20150911
  Transmission Date: 20151125
  Serious: No
  Sender: FDA-Public Use
  Company Number: US-ROCHE-1040688

PATIENT
  Sex: Female

DRUGS (6)
  1. PEGASYS [Suspect]
     Active Substance: PEGINTERFERON ALFA-2A
     Indication: CHRONIC HEPATITIS C
     Route: 058
     Dates: start: 20120127
  2. RIBAVIRIN. [Suspect]
     Active Substance: RIBAVIRIN
     Indication: CHRONIC HEPATITIS C
     Route: 048
     Dates: start: 20120127
  3. TELAPREVIR [Suspect]
     Active Substance: TELAPREVIR
     Indication: CHRONIC HEPATITIS C
     Route: 065
     Dates: start: 20120127
  4. RIBAVIRIN. [Suspect]
     Active Substance: RIBAVIRIN
     Route: 065
     Dates: start: 20120123, end: 20120220
  5. TELAPREVIR [Suspect]
     Active Substance: TELAPREVIR
     Route: 065
     Dates: start: 20120123
  6. LORTAB [Concomitant]
     Active Substance: ACETAMINOPHEN\HYDROCODONE BITARTRATE
     Route: 065

REACTIONS (13)
  - Haemoglobin decreased [Unknown]
  - Arthralgia [Unknown]
  - Dizziness [Unknown]
  - Abdominal pain [Unknown]
  - Hypoaesthesia [Unknown]
  - Speech disorder [Unknown]
  - Diarrhoea [Unknown]
  - Decreased appetite [Unknown]
  - Abdominal distension [Unknown]
  - Pain in extremity [Unknown]
  - Fatigue [Unknown]
  - Aphasia [Unknown]
  - Hypertension [Unknown]
